FAERS Safety Report 4604412-2 (Version None)
Quarter: 2005Q2

REPORT INFORMATION
  Report Type: 
  Country: None (occurrence: None)
  Receive Date: 20050223
  Receipt Date: 20041103
  Transmission Date: 20051028
  Serious: No
  Sender: FDA-Public Use
  Company Number: PHEH2004US11955

PATIENT
  Age: 78 Year
  Sex: Female

DRUGS (14)
  1. ZELNORM [Suspect]
     Dosage: 2 MG ORAL
     Route: 048
     Dates: start: 20040901, end: 20041103
  2. BENICAL (CHLORPHENAMINE MALEATE, DEXTROMETHORPHAN HYDROBROMIDE, PSEUDO [Suspect]
  3. SYNTHROID [Concomitant]
  4. TOPROL-XL [Concomitant]
  5. CLARITIN [Concomitant]
  6. NASONEX [Concomitant]
  7. CLONIDINE [Concomitant]
  8. MECLIZINE [Concomitant]
  9. LORATADINE [Concomitant]
  10. MYLANTA (ALUMINUM HYDROXIDE GEL, DRIED, MAGNESIUM HYDROXIDE, SIMETICON [Concomitant]
  11. ACETYLSALICYLIC ACID SRT [Concomitant]
  12. NITRO (GLYCERYL TRINITRATE) [Concomitant]
  13. COMBIVENT [Concomitant]
  14. TIGAN [Concomitant]

REACTIONS (1)
  - NIGHTMARE [None]
